FAERS Safety Report 8471163-6 (Version None)
Quarter: 2012Q2

REPORT INFORMATION
  Report Type: 
  Country: None (occurrence: None)
  Receive Date: 20120627
  Receipt Date: 20120621
  Transmission Date: 20120825
  Serious: Yes (Hospitalization)
  Sender: FDA-Public Use
  Company Number: US-AMGEN-USASP2012035985

PATIENT
  Age: 61 Year
  Sex: Female

DRUGS (1)
  1. ENBREL [Suspect]
     Indication: RHEUMATOID ARTHRITIS
     Dosage: 50 MG, QWK
     Dates: start: 20090715

REACTIONS (5)
  - SPINAL PAIN [None]
  - WEIGHT BEARING DIFFICULTY [None]
  - RHEUMATOID ARTHRITIS [None]
  - PAIN [None]
  - WALKING AID USER [None]
